FAERS Safety Report 10547362 (Version 3)
Quarter: 2014Q4

REPORT INFORMATION
  Report Type: Spontaneous
  Country: FI (occurrence: FI)
  Receive Date: 20141028
  Receipt Date: 20141113
  Transmission Date: 20150529
  Serious: Yes (Other)
  Sender: FDA-Public Use
  Company Number: FI-AMGEN-FINSP2014081941

PATIENT
  Age: 78 Year
  Sex: Male

DRUGS (5)
  1. ENANTON [Concomitant]
     Indication: PROSTATE CANCER
     Dosage: 30 MG, Q3MO
     Route: 058
     Dates: start: 20090513
  2. ZYTIGA [Concomitant]
     Active Substance: ABIRATERONE ACETATE
     Indication: PROSTATE CANCER STAGE IV
     Dosage: 1000 MG, QD
     Route: 048
     Dates: start: 20131213
  3. PREDNISOLON                        /00016201/ [Concomitant]
     Active Substance: PREDNISOLONE
     Indication: PROSTATE CANCER STAGE IV
     Dosage: 10 MG, QD
     Route: 048
     Dates: start: 20131213
  4. DOCETAXEL. [Concomitant]
     Active Substance: DOCETAXEL
     Dosage: UNK
     Dates: start: 201112, end: 201308
  5. XGEVA [Suspect]
     Active Substance: DENOSUMAB
     Indication: METASTASES TO BONE
     Dosage: 120 MG, EVERY 28 DAYS
     Route: 065
     Dates: start: 20120305, end: 20140520

REACTIONS (1)
  - Osteoradionecrosis [Recovered/Resolved]

NARRATIVE: CASE EVENT DATE: 20140717
